FAERS Safety Report 8972187 (Version 1)
Quarter: 2012Q4

REPORT INFORMATION
  Report Type: 
  Country: CO (occurrence: CO)
  Receive Date: 20121218
  Receipt Date: 20121218
  Transmission Date: 20130627
  Serious: Yes (Hospitalization, Other)
  Sender: FDA-Public Use
  Company Number: CO-AMGEN-COLSP2012078768

PATIENT
  Age: 73 Year
  Sex: Female

DRUGS (1)
  1. ENBREL [Suspect]
     Indication: PSORIASIS
     Dosage: 50 mg, weekly
     Route: 058
     Dates: start: 2008, end: 201205

REACTIONS (7)
  - Cerebrovascular accident [Not Recovered/Not Resolved]
  - Thrombosis [Not Recovered/Not Resolved]
  - Pleural effusion [Not Recovered/Not Resolved]
  - Diabetes mellitus [Not Recovered/Not Resolved]
  - Hypertension [Not Recovered/Not Resolved]
  - Headache [Not Recovered/Not Resolved]
  - Blindness [Not Recovered/Not Resolved]
